FAERS Safety Report 6590099-9 (Version None)
Quarter: 2010Q1

REPORT INFORMATION
  Report Type: 
  Country: None (occurrence: None)
  Receive Date: 20100219
  Receipt Date: 20100217
  Transmission Date: 20100710
  Serious: Yes (Life-Threatening, Hospitalization)
  Sender: FDA-Public Use
  Company Number: PHHY2010RS05568

PATIENT
  Age: 26 Year
  Sex: Female

DRUGS (9)
  1. LEPONEX [Suspect]
     Indication: PSYCHOTIC DISORDER
     Dosage: 100 MG UNK
  2. LEPONEX [Suspect]
     Dosage: 100 TABLETS (100 MG)
     Dates: end: 20100101
  3. MENDILEX [Concomitant]
  4. LAMOTRIGINE [Concomitant]
  5. OPRAZOLAM [Concomitant]
  6. CAVINTON [Concomitant]
  7. TANAKAN [Concomitant]
  8. VITAMIN B6 [Concomitant]
  9. VITAMIN B COMPLEX CAP [Concomitant]

REACTIONS (9)
  - ATHETOSIS [None]
  - COGWHEEL RIGIDITY [None]
  - DYSKINESIA [None]
  - EPILEPSY [None]
  - INFECTION [None]
  - OVERDOSE [None]
  - SUICIDE ATTEMPT [None]
  - TRANSAMINASES INCREASED [None]
  - WHITE BLOOD CELL COUNT INCREASED [None]
